FAERS Safety Report 7015481-7 (Version None)
Quarter: 2010Q3

REPORT INFORMATION
  Report Type: 
  Country: None (occurrence: None)
  Receive Date: 20100927
  Receipt Date: 20100921
  Transmission Date: 20110219
  Serious: Yes (Life-Threatening)
  Sender: FDA-Public Use
  Company Number: CH-ASTRAZENECA-2010SE38551

PATIENT
  Age: 23145 Day
  Sex: Female
  Weight: 65 kg

DRUGS (1)
  1. PROPOFOL [Suspect]
     Indication: GASTRIC OPERATION
     Route: 042
     Dates: start: 20100628

REACTIONS (1)
  - ANAPHYLACTIC SHOCK [None]
